FAERS Safety Report 4476108-1 (Version None)
Quarter: 2004Q3

REPORT INFORMATION
  Report Type: 
  Country: None (occurrence: None)
  Receive Date: 20040923
  Receipt Date: 20040713
  Transmission Date: 20050211
  Serious: No
  Sender: FDA-Public Use
  Company Number: USA040670757

PATIENT
  Age: 73 Year
  Sex: Female

DRUGS (5)
  1. FORTEO [Suspect]
     Indication: OSTEOPOROSIS
     Dates: start: 20040618
  2. LIPITOR [Concomitant]
  3. PROCARDIA XL [Concomitant]
  4. NEXIUM [Concomitant]
  5. CALCIUM [Concomitant]

REACTIONS (2)
  - DIZZINESS [None]
  - INJECTION SITE ERYTHEMA [None]
